FAERS Safety Report 9592323 (Version 1)
Quarter: 2013Q4

REPORT INFORMATION
  Report Type: Spontaneous
  Country: US (occurrence: None)
  Receive Date: 20131003
  Receipt Date: 20131003
  Transmission Date: 20140711
  Serious: No
  Sender: FDA-Public Use
  Company Number: None

PATIENT
  Age: 33 Year
  Sex: Female
  Weight: 71.67 kg

DRUGS (1)
  1. DULERA [Suspect]
     Route: 048

REACTIONS (3)
  - Decreased appetite [None]
  - Nausea [None]
  - Fatigue [None]
